FAERS Safety Report 6028736-X (Version None)
Quarter: 2008Q4

REPORT INFORMATION
  Report Type: 
  Country: None (occurrence: None)
  Receive Date: 20081222
  Receipt Date: 20081016
  Transmission Date: 20090506
  Serious: No
  Sender: FDA-Public Use
  Company Number: ALL1-2008-03021

PATIENT
  Age: 47 Year
  Sex: Female
  Weight: 59 kg

DRUGS (2)
  1. VYVANSE [Suspect]
     Dosage: 50 MG, ONE DOSE, ORAL
     Route: 048
     Dates: start: 20080215, end: 20080215
  2. LEXAPRO [Concomitant]

REACTIONS (2)
  - DRUG DIVERSION [None]
  - FEELING JITTERY [None]
